FAERS Safety Report 16345498 (Version 1)
Quarter: 2019Q2

REPORT INFORMATION
  Report Type: Spontaneous
  Country: CN (occurrence: CN)
  Receive Date: 20190523
  Receipt Date: 20190523
  Transmission Date: 20190711
  Serious: Yes (Death, Other)
  Sender: FDA-Public Use
  Company Number: CN-SUN PHARMACEUTICAL INDUSTRIES LTD-2018R1-193624

PATIENT
  Age: 58 Year
  Sex: Female

DRUGS (5)
  1. CISPLATIN. [Suspect]
     Active Substance: CISPLATIN
     Dosage: 1 CYCLE
     Route: 065
  2. PEMETREXED. [Suspect]
     Active Substance: PEMETREXED
     Dosage: 1 CYCLE
     Route: 065
  3. CISPLATIN. [Suspect]
     Active Substance: CISPLATIN
     Indication: MESOTHELIOMA
     Dosage: 2 CYCLES
     Route: 065
     Dates: start: 201512
  4. GEMCITABINE [Suspect]
     Active Substance: GEMCITABINE\GEMCITABINE HYDROCHLORIDE
     Indication: MESOTHELIOMA
     Dosage: 1 CYCLE
     Route: 065
  5. PEMETREXED. [Suspect]
     Active Substance: PEMETREXED
     Indication: MESOTHELIOMA
     Dosage: 2 CYCLES
     Route: 065
     Dates: start: 201512

REACTIONS (4)
  - Treatment failure [Unknown]
  - Fatigue [Unknown]
  - Disease progression [Unknown]
  - Anaemia [Unknown]
